FAERS Safety Report 21870719 (Version 1)
Quarter: 2023Q1

REPORT INFORMATION
  Report Type: Other
  Country: US (occurrence: None)
  Receive Date: 20230117
  Receipt Date: 20230117
  Transmission Date: 20230418
  Serious: No
  Sender: FDA-Public Use
  Company Number: US-ROCHE-3263498

PATIENT
  Age: 59 Year
  Sex: Female
  Weight: 60.836 kg

DRUGS (6)
  1. OCREVUS [Suspect]
     Active Substance: OCRELIZUMAB
     Indication: Secondary progressive multiple sclerosis
     Dosage: 300MG ON DAY 1 AND DAY 15
     Route: 042
     Dates: start: 2020
  2. GABAPENTIN [Concomitant]
     Active Substance: GABAPENTIN
  3. TIZANIDINE [Concomitant]
     Active Substance: TIZANIDINE
  4. SIMVASTATIN [Concomitant]
     Active Substance: SIMVASTATIN
  5. NIRMATRELVIR\RITONAVIR [Concomitant]
     Active Substance: NIRMATRELVIR\RITONAVIR
  6. PAXLOVID [Concomitant]
     Active Substance: NIRMATRELVIR\RITONAVIR

REACTIONS (3)
  - COVID-19 [Recovering/Resolving]
  - Blood cholesterol increased [Not Recovered/Not Resolved]
  - SARS-CoV-2 antibody test negative [Not Recovered/Not Resolved]

NARRATIVE: CASE EVENT DATE: 20220901
